FAERS Safety Report 5871473-2 (Version None)
Quarter: 2008Q3

REPORT INFORMATION
  Report Type: 
  Country: None (occurrence: None)
  Receive Date: 20080905
  Receipt Date: 20080204
  Transmission Date: 20090109
  Serious: No
  Sender: FDA-Public Use
  Company Number: A0708438A

PATIENT
  Age: 87 Year
  Sex: Male

DRUGS (1)
  1. REQUIP [Suspect]
     Indication: DRUG USE FOR UNKNOWN INDICATION
     Dosage: .375MG AT NIGHT
     Route: 048

REACTIONS (1)
  - DRUG INEFFECTIVE [None]
